FAERS Safety Report 5804615-5 (Version None)
Quarter: 2008Q3

REPORT INFORMATION
  Report Type: 
  Country: None (occurrence: None)
  Receive Date: 20080702
  Receipt Date: 20080121
  Transmission Date: 20090109
  Serious: Yes (Other)
  Sender: FDA-Public Use
  Company Number: 542253

PATIENT
  Age: 30 Year
  Sex: Male

DRUGS (14)
  1. KLONOPIN [Suspect]
     Indication: ANXIETY
  2. CLONAZEPAM [Suspect]
     Indication: ANXIETY
  3. COCAINE (COCAINE) [Suspect]
     Indication: DRUG USE FOR UNKNOWN INDICATION
  4. PHENOBARBITAL TAB [Suspect]
  5. HYDROCODONE (HYDROCODONE BITARTRATE) [Concomitant]
  6. PREVACID [Concomitant]
  7. RANITIDINE [Concomitant]
  8. INDERAL [Concomitant]
  9. DOXYCYCLINE [Concomitant]
  10. CLONIDINE [Concomitant]
  11. DOXEPIN HCL [Concomitant]
  12. REMERON [Concomitant]
  13. ATENOLOL [Concomitant]
  14. SOMA [Concomitant]

REACTIONS (2)
  - CONVULSION [None]
  - OVERDOSE [None]
